FAERS Safety Report 8214923-9 (Version None)
Quarter: 2012Q1

REPORT INFORMATION
  Report Type: 
  Country: None (occurrence: None)
  Receive Date: 20120316
  Receipt Date: 20120308
  Transmission Date: 20120608
  Serious: Yes (Other)
  Sender: FDA-Public Use
  Company Number: US-JNJFOC-20120205157

PATIENT
  Sex: Female

DRUGS (26)
  1. ELAVIL [Suspect]
     Indication: PRODUCT USED FOR UNKNOWN INDICATION
     Route: 065
  2. LANTUS [Concomitant]
     Indication: DIABETES MELLITUS
     Route: 058
  3. LEVOTHYROXINE SODIUM [Concomitant]
     Indication: THYROID DISORDER
     Route: 065
  4. LISINOPRIL [Concomitant]
     Indication: BLOOD PRESSURE
     Route: 065
  5. TRAZODONE HCL [Concomitant]
     Indication: SLEEP DISORDER
     Route: 065
  6. CYCLOBENZAPRINE HCL [Concomitant]
     Indication: FIBROMYALGIA
     Route: 065
  7. IBUPROFEN (ADVIL) [Concomitant]
     Indication: VERTIGO
     Dosage: 6 AM TO 6 PM
     Route: 065
  8. MECLIZINE [Concomitant]
     Indication: VERTIGO
     Dosage: EVERY 4 TO 6 HOURS
     Route: 065
  9. RANITIDINE [Concomitant]
     Indication: URTICARIA
     Route: 065
  10. HYDROXYZINE PAMOATE [Concomitant]
     Indication: URTICARIA
     Route: 065
  11. TRIAMCINOLONE ACETONIDE [Concomitant]
     Indication: ECZEMA
     Route: 065
  12. CYCLOBENZAPRINE HCL [Concomitant]
     Indication: MUSCLE SPASMS
     Route: 065
  13. GLUCOPHAGE [Suspect]
     Indication: PRODUCT USED FOR UNKNOWN INDICATION
     Route: 065
  14. NAPROXEN SODIUM [Concomitant]
     Indication: PAIN
     Dosage: 2 IN THE MORNING AND 2 AT NIGHT
     Route: 065
  15. VICODIN ES [Suspect]
     Indication: PRODUCT USED FOR UNKNOWN INDICATION
     Route: 065
  16. GLIPIZIDE [Concomitant]
     Indication: DIABETES MELLITUS
     Route: 065
  17. ULTRAM [Suspect]
     Indication: PRODUCT USED FOR UNKNOWN INDICATION
     Route: 048
  18. LIPITOR [Concomitant]
     Indication: BLOOD CHOLESTEROL
     Route: 065
  19. TRAZODONE HCL [Concomitant]
     Indication: DEPRESSION
     Route: 065
  20. TRAZODONE HCL [Concomitant]
     Indication: MENOPAUSE
     Route: 065
  21. OMEPRAZOLE [Concomitant]
     Indication: GASTROOESOPHAGEAL REFLUX DISEASE
     Route: 048
  22. LISINOPRIL [Concomitant]
     Indication: MINERAL SUPPLEMENTATION
     Route: 065
  23. CODEINE SULFATE [Suspect]
     Indication: PRODUCT USED FOR UNKNOWN INDICATION
     Route: 065
  24. FUROSEMIDE [Concomitant]
     Indication: FLUID RETENTION
     Route: 065
  25. CETIRIZINE HCL [Concomitant]
     Indication: URTICARIA
     Dosage: 1 IN THE MORNING PRN
     Route: 065
  26. DOCUSATE SODIUM [Concomitant]
     Indication: CONSTIPATION
     Route: 065

REACTIONS (5)
  - LOSS OF CONSCIOUSNESS [None]
  - VOMITING [None]
  - DIARRHOEA [None]
  - DRUG HYPERSENSITIVITY [None]
  - ABDOMINAL PAIN [None]
